FAERS Safety Report 7294099-5 (Version None)
Quarter: 2011Q1

REPORT INFORMATION
  Report Type: 
  Country: None (occurrence: None)
  Receive Date: 20110215
  Receipt Date: 20110211
  Transmission Date: 20110831
  Serious: Yes (Life-Threatening, Other)
  Sender: FDA-Public Use
  Company Number: UG-ABBOTT-11P-165-0704492-00

PATIENT
  Age: 15 Year
  Sex: Female

DRUGS (7)
  1. ZIDOVUDINE [Concomitant]
     Indication: PRODUCT USED FOR UNKNOWN INDICATION
     Dates: start: 20101208, end: 20110127
  2. SEPTRIN [Concomitant]
     Indication: PRODUCT USED FOR UNKNOWN INDICATION
     Dates: start: 20100108, end: 20110127
  3. LAMIVUDINE [Concomitant]
     Indication: PRODUCT USED FOR UNKNOWN INDICATION
     Dates: start: 20041208, end: 20110127
  4. NEVIRAPINE [Concomitant]
     Indication: PRODUCT USED FOR UNKNOWN INDICATION
     Dates: start: 20041208, end: 20110127
  5. COARTEM [Concomitant]
     Indication: PRODUCT USED FOR UNKNOWN INDICATION
  6. ALUVIA TABLETS [Suspect]
     Indication: HIV INFECTION
     Route: 048
     Dates: start: 20110127
  7. RALTEGRAVIR [Concomitant]
     Indication: PRODUCT USED FOR UNKNOWN INDICATION
     Dates: start: 20110127

REACTIONS (10)
  - DYSURIA [None]
  - MALAISE [None]
  - PYREXIA [None]
  - DIZZINESS [None]
  - COUGH [None]
  - URINARY TRACT INFECTION [None]
  - MALARIA [None]
  - CONVULSION [None]
  - VOMITING [None]
  - DIARRHOEA [None]
